FAERS Safety Report 8590707-7 (Version None)
Quarter: 2012Q3

REPORT INFORMATION
  Report Type: 
  Country: None (occurrence: None)
  Receive Date: 20120731
  Receipt Date: 20120723
  Transmission Date: 20120928
  Serious: Yes (Other)
  Sender: FDA-Public Use
  Company Number: ADR-2012-00748

PATIENT
  Sex: Male

DRUGS (3)
  1. LIORESAL [Suspect]
     Indication: MUSCLE SPASTICITY
     Dosage: 100 MCG/DAY
  2. LIORESAL [Suspect]
     Indication: BRAIN INJURY
     Dosage: 100 MCG/DAY
  3. LIORESAL [Suspect]
     Indication: HEAD INJURY
     Dosage: 100 MCG/DAY

REACTIONS (12)
  - SEDATION [None]
  - URINARY TRACT INFECTION [None]
  - INCREASED BRONCHIAL SECRETION [None]
  - RESPIRATORY DEPRESSION [None]
  - PNEUMONIA [None]
  - OESOPHAGEAL DISORDER [None]
  - COGNITIVE DISORDER [None]
  - DRUG HYPERSENSITIVITY [None]
  - INCORRECT DOSE ADMINISTERED [None]
  - CONFUSIONAL STATE [None]
  - DYSPHAGIA [None]
  - COUGH [None]
